FAERS Safety Report 7366018-4 (Version None)
Quarter: 2011Q1

REPORT INFORMATION
  Report Type: 
  Country: None (occurrence: None)
  Receive Date: 20110322
  Receipt Date: 20101005
  Transmission Date: 20110831
  Serious: Yes (Life-Threatening, Hospitalization)
  Sender: FDA-Public Use
  Company Number: US-BAYER-201028913NA

PATIENT
  Sex: Female
  Weight: 113.38 kg

DRUGS (13)
  1. YASMIN [Suspect]
     Indication: ORAL CONTRACEPTION
     Dosage: UNK UNK, QD
     Route: 048
     Dates: start: 20030805, end: 20080818
  2. NABUMETONE [Concomitant]
     Dosage: 750 MG, UNK
     Route: 048
     Dates: start: 20080730
  3. LEVAQUIN [Concomitant]
     Dosage: 500 MG, UNK
     Route: 048
     Dates: start: 20080520
  4. ALACOL DM [Concomitant]
     Dosage: UNK
     Route: 048
     Dates: start: 20080520
  5. ZITHROMAX [Concomitant]
     Dosage: 250 MG, UNK
     Route: 048
     Dates: start: 20050228
  6. HISTINEX HC [Concomitant]
     Dosage: UNK
     Route: 048
     Dates: start: 20080111
  7. CIPROFLOXACIN [Concomitant]
     Dosage: 500 MG, UNK
     Route: 048
     Dates: start: 20080111
  8. VALTREX [Concomitant]
     Dosage: 500 MG, UNK
     Dates: start: 20051021
  9. NEXIUM [Concomitant]
     Dosage: 40 MG, UNK
     Route: 048
     Dates: start: 20080529
  10. CYCLOBENZAPRINE [Concomitant]
     Dosage: 10 MG, UNK
     Route: 048
     Dates: start: 20080730
  11. FLUCONAZOLE [Concomitant]
     Dosage: 200 MG, UNK
     Route: 048
     Dates: start: 20050915
  12. XIFAXAN [Concomitant]
     Dosage: 200 MG, UNK
     Route: 048
     Dates: start: 20070426
  13. NEOMYCIN [Concomitant]
     Dosage: 500 MG, UNK
     Dates: start: 20070426

REACTIONS (8)
  - DEEP VEIN THROMBOSIS [None]
  - PULMONARY EMBOLISM [None]
  - PULMONARY INFARCTION [None]
  - PAIN [None]
  - DYSPNOEA [None]
  - CHEST PAIN [None]
  - PYREXIA [None]
  - ANXIETY [None]
